FAERS Safety Report 17660581 (Version 2)
Quarter: 2020Q2

REPORT INFORMATION
  Report Type: Spontaneous
  Country: AR (occurrence: AR)
  Receive Date: 20200413
  Receipt Date: 20200414
  Transmission Date: 20200713
  Serious: Yes (Hospitalization, Other)
  Sender: FDA-Public Use
  Company Number: AR-PFIZER INC-2020149410

PATIENT
  Age: 73 Year
  Sex: Female

DRUGS (1)
  1. AROMASIN [Suspect]
     Active Substance: EXEMESTANE
     Indication: BREAST CANCER METASTATIC
     Dosage: 25 MG, DAILY, SCHEME 3X1
     Dates: start: 20191023

REACTIONS (10)
  - Suicidal ideation [Unknown]
  - Pain in extremity [Unknown]
  - Hypersensitivity [Unknown]
  - Diabetes mellitus [Unknown]
  - Neck pain [Unknown]
  - Peripheral swelling [Unknown]
  - Localised infection [Unknown]
  - Vein rupture [Unknown]
  - Asthenia [Unknown]
  - Thrombosis [Unknown]
